FAERS Safety Report 6334216-4 (Version None)
Quarter: 2009Q3

REPORT INFORMATION
  Report Type: 
  Country: None (occurrence: None)
  Receive Date: 20090829
  Receipt Date: 20090728
  Transmission Date: 20100115
  Serious: No
  Sender: FDA-Public Use
  Company Number: US-ABBOTT-09P-163-0588360-00

PATIENT
  Sex: Male
  Weight: 80.812 kg

DRUGS (1)
  1. SIMCOR [Suspect]
     Indication: BLOOD TRIGLYCERIDES INCREASED
     Dosage: 500MG/20MG EVERY NIGHT
     Dates: start: 20090715

REACTIONS (1)
  - DIARRHOEA [None]
